FAERS Safety Report 14935539 (Version 1)
Quarter: 2018Q2

REPORT INFORMATION
  Report Type: Spontaneous
  Country: US (occurrence: US)
  Receive Date: 20180524
  Receipt Date: 20180524
  Transmission Date: 20180711
  Serious: No
  Sender: FDA-Public Use
  Company Number: US-TESARO, INC.-US-2018TSO00935

PATIENT

DRUGS (1)
  1. ZEJULA [Suspect]
     Active Substance: NIRAPARIB
     Indication: PANCREATIC CARCINOMA
     Dosage: 100 MG, QD
     Route: 048
     Dates: start: 20170725

REACTIONS (3)
  - Product use in unapproved indication [Unknown]
  - Drug dose omission [Unknown]
  - Intentional underdose [Unknown]

NARRATIVE: CASE EVENT DATE: 201801
